FAERS Safety Report 18191584 (Version 1)
Quarter: 2020Q3

REPORT INFORMATION
  Report Type: Spontaneous
  Country: US (occurrence: US)
  Receive Date: 20200825
  Receipt Date: 20200825
  Transmission Date: 20201103
  Serious: Yes (Hospitalization, Other)
  Sender: FDA-Public Use
  Company Number: US-INFO-001059

PATIENT
  Age: 3 Decade
  Sex: Male
  Weight: 80 kg

DRUGS (20)
  1. FLUOXETINE HYDROCHLORIDE. [Interacting]
     Active Substance: FLUOXETINE HYDROCHLORIDE
     Indication: DEPRESSION
     Route: 065
  2. MIDAZOLAM. [Concomitant]
     Active Substance: MIDAZOLAM
     Route: 042
  3. OXYGEN. [Concomitant]
     Active Substance: OXYGEN
  4. SEVOFLURANE. [Concomitant]
     Active Substance: SEVOFLURANE
     Route: 065
  5. METOCLOPRAMIDE. [Interacting]
     Active Substance: METOCLOPRAMIDE
     Route: 042
  6. HYDROMORPHONE [Concomitant]
     Active Substance: HYDROMORPHONE
     Route: 042
  7. GLYCOPYRRONIUM [Concomitant]
     Active Substance: GLYCOPYRRONIUM
     Route: 042
  8. HALOPERIDOL. [Concomitant]
     Active Substance: HALOPERIDOL
     Route: 042
  9. METRONIDAZOLE. [Suspect]
     Active Substance: METRONIDAZOLE
     Indication: ANTIBIOTIC PROPHYLAXIS
     Route: 042
  10. PROPOFOL. [Concomitant]
     Active Substance: PROPOFOL
     Route: 042
  11. SUCCINYLCHOLINE CHLORIDE. [Concomitant]
     Active Substance: SUCCINYLCHOLINE CHLORIDE
     Route: 042
  12. ERTAPENEM. [Concomitant]
     Active Substance: ERTAPENEM SODIUM
     Indication: ANTIBIOTIC PROPHYLAXIS
     Route: 065
  13. ONDANSETRON [Interacting]
     Active Substance: ONDANSETRON
     Route: 042
  14. METHYLTHIONINIUM CHLORIDE [Interacting]
     Active Substance: METHYLENE BLUE
     Dosage: 100 MG WAS INTRAVENOUSLY ADMINISTERED TWICE
     Route: 042
  15. MORPHINE [Concomitant]
     Active Substance: MORPHINE
     Route: 065
  16. ETOMIDATE. [Concomitant]
     Active Substance: ETOMIDATE
     Route: 042
  17. CEFAZOLIN [Concomitant]
     Active Substance: CEFAZOLIN
     Route: 042
  18. FENTANYL. [Interacting]
     Active Substance: FENTANYL
     Indication: PAIN
     Dosage: 100 ?G IN DIVIDED DOSES
     Route: 065
  19. NEOSTIGMINE. [Concomitant]
     Active Substance: NEOSTIGMINE METHYLSULFATE
     Route: 042
  20. CISATRACURIUM. [Concomitant]
     Active Substance: CISATRACURIUM
     Route: 042

REACTIONS (2)
  - Serotonin syndrome [Recovered/Resolved]
  - Drug interaction [Recovered/Resolved]
